FAERS Safety Report 7676700-7 (Version None)
Quarter: 2011Q3

REPORT INFORMATION
  Report Type: 
  Country: None (occurrence: None)
  Receive Date: 20110811
  Receipt Date: 20110803
  Transmission Date: 20111222
  Serious: Yes (Other)
  Sender: FDA-Public Use
  Company Number: FR-JNJFOC-20080205322

PATIENT
  Sex: Female

DRUGS (7)
  1. RISPERDAL [Suspect]
     Route: 048
  2. TERCIAN [Concomitant]
  3. RISPERDAL [Suspect]
     Indication: PRODUCT USED FOR UNKNOWN INDICATION
     Route: 048
  4. RISPERDAL [Suspect]
     Route: 048
  5. CLOZAPINE [Concomitant]
  6. CLOPIXOL [Concomitant]
  7. RISPERDAL CONSTA [Suspect]
     Indication: PRODUCT USED FOR UNKNOWN INDICATION
     Route: 030

REACTIONS (9)
  - BALANCE DISORDER [None]
  - FEELING ABNORMAL [None]
  - SUICIDAL IDEATION [None]
  - NERVOUS SYSTEM DISORDER [None]
  - DELUSION [None]
  - BRAIN INJURY [None]
  - AMNESIA [None]
  - CONFUSIONAL STATE [None]
  - MENTAL IMPAIRMENT [None]
